FAERS Safety Report 7458667-X (Version None)
Quarter: 2011Q2

REPORT INFORMATION
  Report Type: 
  Country: None (occurrence: None)
  Receive Date: 20110426
  Receipt Date: 20110415
  Transmission Date: 20111010
  Serious: Yes (Life-Threatening)
  Sender: FDA-Public Use
  Company Number: 1000019801

PATIENT
  Age: 63 Year
  Sex: Male

DRUGS (5)
  1. THEOPHYLLINE [Concomitant]
  2. ROFLUMILAST (ROFLUMILAST) (TABLETS) [Suspect]
     Indication: CHRONIC OBSTRUCTIVE PULMONARY DISEASE
     Dosage: 500 MCG (500 MCG)
     Dates: start: 20110217, end: 20110304
  3. ATMADISC (SERETIDE MITE) (INHALANT) (SERETIDE MITE) [Concomitant]
  4. ATROVENT (INHALANT) [Concomitant]
  5. OXYGEN (OXYGEN) (OXYGEN) [Concomitant]

REACTIONS (1)
  - CIRCULATORY COLLAPSE [None]
